FAERS Safety Report 8042156-8 (Version None)
Quarter: 2012Q1

REPORT INFORMATION
  Report Type: 
  Country: None (occurrence: None)
  Receive Date: 20120112
  Receipt Date: 20111228
  Transmission Date: 20120608
  Serious: Yes (Death)
  Sender: FDA-Public Use
  Company Number: US-UCBSA-049201

PATIENT
  Age: 47 Year
  Sex: Male

DRUGS (5)
  1. AMITRIPTYLINE HCL [Suspect]
  2. ACETAMINOPHEN AND HYDROCODONE BITARTRATE [Suspect]
  3. METHAMPHETAMINE [Suspect]
  4. CLONAZEPAM [Suspect]
  5. FENTANYL [Suspect]
     Route: 062

REACTIONS (1)
  - DRUG ABUSE [None]
